FAERS Safety Report 16204767 (Version 2)
Quarter: 2019Q3

REPORT INFORMATION
  Report Type: Spontaneous
  Country: US (occurrence: US)
  Receive Date: 20190416
  Receipt Date: 20190912
  Transmission Date: 20191004
  Serious: Yes (Hospitalization, Other)
  Sender: FDA-Public Use
  Company Number: US-ASTRAZENECA-2019SE54429

PATIENT
  Age: 732 Month
  Sex: Male

DRUGS (43)
  1. PRILOSEC OTC [Suspect]
     Active Substance: OMEPRAZOLE MAGNESIUM
     Indication: GASTROOESOPHAGEAL REFLUX DISEASE
     Route: 048
  2. CLOPIDOGREL [Concomitant]
     Active Substance: CLOPIDOGREL BISULFATE
  3. CYCLOBENZAPRINE. [Concomitant]
     Active Substance: CYCLOBENZAPRINE
  4. TRICOR [Concomitant]
     Active Substance: FENOFIBRATE
  5. FOLIC ACID. [Concomitant]
     Active Substance: FOLIC ACID
  6. LEVAQUIN [Concomitant]
     Active Substance: LEVOFLOXACIN
  7. VANCOMYCIN [Concomitant]
     Active Substance: VANCOMYCIN
  8. ALPRAZOLAM. [Concomitant]
     Active Substance: ALPRAZOLAM
  9. DIAZEPAM. [Concomitant]
     Active Substance: DIAZEPAM
  10. FAMOTIDINE. [Concomitant]
     Active Substance: FAMOTIDINE
  11. NITROFURANTOIN. [Concomitant]
     Active Substance: NITROFURANTOIN
  12. OXYCODONE [Concomitant]
     Active Substance: OXYCODONE
  13. SULFAMETHOXAZOLE-TRIMETHOPRIM [Concomitant]
     Active Substance: SULFAMETHOXAZOLE\TRIMETHOPRIM
  14. PRILOSEC OTC [Suspect]
     Active Substance: OMEPRAZOLE MAGNESIUM
     Indication: GASTROOESOPHAGEAL REFLUX DISEASE
     Route: 048
     Dates: start: 20051010
  15. AMOXICILLIN. [Concomitant]
     Active Substance: AMOXICILLIN
  16. AUGMENTIN [Concomitant]
     Active Substance: AMOXICILLIN\CLAVULANATE POTASSIUM
  17. CELEBREX [Concomitant]
     Active Substance: CELECOXIB
  18. MYFORTIC [Concomitant]
     Active Substance: MYCOPHENOLATE SODIUM
  19. RANITIDINE. [Concomitant]
     Active Substance: RANITIDINE
  20. PROTONIX [Suspect]
     Active Substance: PANTOPRAZOLE SODIUM
     Indication: GASTROOESOPHAGEAL REFLUX DISEASE
     Route: 065
     Dates: start: 20051010
  21. CEPHALEXIN. [Concomitant]
     Active Substance: CEPHALEXIN
  22. FUROSEMIDE. [Concomitant]
     Active Substance: FUROSEMIDE
  23. LISINOPRIL. [Concomitant]
     Active Substance: LISINOPRIL
  24. METOPROLOL TARTRATE. [Concomitant]
     Active Substance: METOPROLOL TARTRATE
  25. ASPIRIN. [Concomitant]
     Active Substance: ASPIRIN
  26. VITAMIN D3 [Concomitant]
     Active Substance: CHOLECALCIFEROL
  27. PRILOSEC [Suspect]
     Active Substance: OMEPRAZOLE MAGNESIUM
     Indication: GASTROOESOPHAGEAL REFLUX DISEASE
     Route: 048
  28. PREVACID [Suspect]
     Active Substance: LANSOPRAZOLE
     Indication: GASTROOESOPHAGEAL REFLUX DISEASE
     Route: 065
  29. NORVASC [Concomitant]
     Active Substance: AMLODIPINE BESYLATE
  30. LIPITOR [Concomitant]
     Active Substance: ATORVASTATIN CALCIUM
  31. SIMVASTATIN. [Concomitant]
     Active Substance: SIMVASTATIN
  32. TACROLIMUS. [Concomitant]
     Active Substance: TACROLIMUS
  33. PRILOSEC [Suspect]
     Active Substance: OMEPRAZOLE MAGNESIUM
     Indication: GASTROOESOPHAGEAL REFLUX DISEASE
     Dosage: GENERIC
     Route: 065
  34. PRILOSEC [Suspect]
     Active Substance: OMEPRAZOLE MAGNESIUM
     Indication: GASTROOESOPHAGEAL REFLUX DISEASE
     Route: 048
     Dates: start: 20061104
  35. PROTONIX [Suspect]
     Active Substance: PANTOPRAZOLE SODIUM
     Indication: GASTROOESOPHAGEAL REFLUX DISEASE
     Route: 065
  36. ALLOPURINOL. [Concomitant]
     Active Substance: ALLOPURINOL
  37. DOXYCYCLINE. [Concomitant]
     Active Substance: DOXYCYCLINE
  38. CIPROFLOXACIN. [Concomitant]
     Active Substance: CIPROFLOXACIN
  39. CLARITHROMYCIN. [Concomitant]
     Active Substance: CLARITHROMYCIN
  40. GLIPIZIDE. [Concomitant]
     Active Substance: GLIPIZIDE
  41. RENAGEL [Concomitant]
     Active Substance: SEVELAMER HYDROCHLORIDE
  42. PREVACID [Suspect]
     Active Substance: LANSOPRAZOLE
     Indication: GASTROOESOPHAGEAL REFLUX DISEASE
     Dosage: GENERIC
     Route: 065
  43. PRILOSEC OTC [Suspect]
     Active Substance: OMEPRAZOLE MAGNESIUM
     Indication: GASTROOESOPHAGEAL REFLUX DISEASE
     Route: 048
     Dates: start: 20030101, end: 20140630

REACTIONS (6)
  - Hyperparathyroidism secondary [Unknown]
  - Renal failure [Unknown]
  - Acute kidney injury [Unknown]
  - Chronic kidney disease [Unknown]
  - End stage renal disease [Not Recovered/Not Resolved]
  - Nephrogenic anaemia [Unknown]

NARRATIVE: CASE EVENT DATE: 200611
